FAERS Safety Report 13747304 (Version 1)
Quarter: 2017Q3

REPORT INFORMATION
  Report Type: Report from Study
  Country: US (occurrence: US)
  Receive Date: 20170712
  Receipt Date: 20170712
  Transmission Date: 20171127
  Serious: Yes (Hospitalization)
  Sender: FDA-Public Use
  Company Number: US-BAYER-2017-131093

PATIENT
  Sex: Male

DRUGS (1)
  1. STIVARGA [Suspect]
     Active Substance: REGORAFENIB
     Indication: COLORECTAL CANCER
     Dosage: 80 MG, BID
     Route: 048
     Dates: start: 20170614, end: 2017

REACTIONS (5)
  - Arthralgia [None]
  - Skin exfoliation [None]
  - Pain in extremity [None]
  - Mass [None]
  - Gait disturbance [None]

NARRATIVE: CASE EVENT DATE: 2017
